FAERS Safety Report 8392710-9 (Version None)
Quarter: 2012Q2

REPORT INFORMATION
  Report Type: 
  Country: None (occurrence: None)
  Receive Date: 20120529
  Receipt Date: 20120521
  Transmission Date: 20120825
  Serious: Yes (Hospitalization)
  Sender: FDA-Public Use
  Company Number: IT-ELI_LILLY_AND_COMPANY-IT201205008289

PATIENT
  Sex: Female

DRUGS (2)
  1. HUMALOG [Suspect]
     Dosage: UNK UNK, PRN
     Route: 058
     Dates: end: 20120511
  2. HUMALOG [Suspect]
     Indication: TYPE 1 DIABETES MELLITUS
     Dosage: 14 IU, UNKNOWN
     Route: 058
     Dates: start: 20110801

REACTIONS (2)
  - DRUG PRESCRIBING ERROR [None]
  - DIABETES MELLITUS INADEQUATE CONTROL [None]
